FAERS Safety Report 6430514-4 (Version None)
Quarter: 2009Q4

REPORT INFORMATION
  Report Type: 
  Country: None (occurrence: None)
  Receive Date: 20091105
  Receipt Date: 20091105
  Transmission Date: 20100525
  Serious: Yes (Hospitalization)
  Sender: FDA-Public Use
  Company Number: None

PATIENT
  Age: 49 Year

DRUGS (1)
  1. TRAZODONE HCL [Suspect]
     Indication: INSOMNIA
     Dosage: 50 MG HS PO
     Route: 048
     Dates: start: 20091029, end: 20091105

REACTIONS (6)
  - ATAXIA [None]
  - CLUMSINESS [None]
  - DIZZINESS [None]
  - DYSKINESIA [None]
  - MALAISE [None]
  - TREMOR [None]
